FAERS Safety Report 19738876 (Version 1)
Quarter: 2021Q3

REPORT INFORMATION
  Report Type: Spontaneous
  Country: US (occurrence: US)
  Receive Date: 20210824
  Receipt Date: 20210824
  Transmission Date: 20211014
  Serious: No
  Sender: FDA-Public Use
  Company Number: US-TORRENT-00011219

PATIENT
  Age: 70 Year
  Sex: Female
  Weight: 54 kg

DRUGS (3)
  1. SIMVASTATIN. [Concomitant]
     Active Substance: SIMVASTATIN
     Indication: BLOOD CHOLESTEROL INCREASED
     Dosage: 10 MG ONCE A DAY, SINCE LONG TIME
  2. ESCITALOPRAM OXALATE TABLETS [Suspect]
     Active Substance: ESCITALOPRAM OXALATE
     Indication: DEPRESSION
     Dates: start: 20210707
  3. ESCITALOPRAM [Suspect]
     Active Substance: ESCITALOPRAM OXALATE
     Indication: DEPRESSION
     Dates: start: 2021

REACTIONS (4)
  - Drug ineffective [Unknown]
  - Crying [Not Recovered/Not Resolved]
  - Depression [Unknown]
  - Depressed mood [Unknown]

NARRATIVE: CASE EVENT DATE: 2021
